FAERS Safety Report 15053306 (Version 1)
Quarter: 2018Q2

REPORT INFORMATION
  Report Type: Spontaneous
  Country: FR (occurrence: FR)
  Receive Date: 20180622
  Receipt Date: 20180622
  Transmission Date: 20180711
  Serious: Yes (Hospitalization)
  Sender: FDA-Public Use
  Company Number: FR-TEVA-2018-FR-909963

PATIENT
  Age: 82 Year
  Sex: Male
  Weight: 84 kg

DRUGS (2)
  1. PERMIXON 160 MG, G?LULE [Suspect]
     Active Substance: HERBALS\SAW PALMETTO
     Route: 065
  2. PROPRANOLOL TEVA [Suspect]
     Active Substance: PROPRANOLOL HYDROCHLORIDE
     Dosage: 160 MILLIGRAM DAILY;
     Route: 048
     Dates: start: 20180215, end: 20180215

REACTIONS (4)
  - Hepatocellular injury [Recovered/Resolved]
  - Drug administration error [Recovered/Resolved]
  - Hypotension [Recovered/Resolved]
  - Bradycardia [Recovered/Resolved]

NARRATIVE: CASE EVENT DATE: 20180215
